FAERS Safety Report 22239306 (Version 4)
Quarter: 2025Q2

REPORT INFORMATION
  Report Type: Spontaneous
  Country: US (occurrence: US)
  Receive Date: 20230421
  Receipt Date: 20250602
  Transmission Date: 20250716
  Serious: No
  Sender: BIOGEN
  Company Number: US-BIOGEN-2022BI01154561

PATIENT
  Sex: Female

DRUGS (8)
  1. PLEGRIDY [Suspect]
     Active Substance: PEGINTERFERON BETA-1A
     Indication: Multiple sclerosis
     Route: 050
  2. PLEGRIDY [Suspect]
     Active Substance: PEGINTERFERON BETA-1A
  3. PLEGRIDY [Suspect]
     Active Substance: PEGINTERFERON BETA-1A
     Indication: Multiple sclerosis
     Dosage: EVERY 21 DAYS
     Route: 050
     Dates: start: 20151014
  4. PLEGRIDY [Suspect]
     Active Substance: PEGINTERFERON BETA-1A
  5. GABAPENTIN [Concomitant]
     Active Substance: GABAPENTIN
     Route: 050
  6. CYCLOBENZAPRINE HYDROCHLORIDE [Concomitant]
     Active Substance: CYCLOBENZAPRINE HYDROCHLORIDE
     Route: 050
  7. PANTOPRAZOLE SODIUM [Concomitant]
     Active Substance: PANTOPRAZOLE SODIUM
     Route: 050
  8. ALEVE [Concomitant]
     Active Substance: NAPROXEN SODIUM
     Route: 050

REACTIONS (7)
  - Product dose omission issue [Unknown]
  - Illness [Unknown]
  - Musculoskeletal stiffness [Unknown]
  - Influenza like illness [Unknown]
  - Chills [Unknown]
  - Arthralgia [Unknown]
  - Headache [Unknown]
